FAERS Safety Report 12744710 (Version 1)
Quarter: 2016Q3

REPORT INFORMATION
  Report Type: Report from Study
  Country: ES (occurrence: ES)
  Receive Date: 20160915
  Receipt Date: 20160915
  Transmission Date: 20161109
  Serious: Yes (Other)
  Sender: FDA-Public Use
  Company Number: ES-BAXTER-2016BAX046316

PATIENT
  Age: 75 Year

DRUGS (11)
  1. VINCRISTINA [Suspect]
     Active Substance: VINCRISTINE
     Indication: CHRONIC LYMPHOCYTIC LEUKAEMIA
     Dosage: COMPLETE DOSE
     Route: 065
  2. VINCRISTINA [Suspect]
     Active Substance: VINCRISTINE
     Dosage: COMPLETE DOSE
     Route: 065
  3. RITUXIMAB [Suspect]
     Active Substance: RITUXIMAB
     Indication: CHRONIC LYMPHOCYTIC LEUKAEMIA
     Dosage: FIRST VISIT, REDUCE DOSE
     Route: 065
     Dates: start: 20110524, end: 20110525
  4. RITUXIMAB [Suspect]
     Active Substance: RITUXIMAB
     Dosage: FOURTH VISIT, COMPLETE DOSE
     Route: 065
     Dates: start: 20110727, end: 20110727
  5. PREDNISONA [Suspect]
     Active Substance: PREDNISONE
     Dosage: COMPLETE DOSE
     Route: 065
  6. PREDNISONA [Suspect]
     Active Substance: PREDNISONE
     Indication: CHRONIC LYMPHOCYTIC LEUKAEMIA
     Dosage: COMPLETE DOSE
     Route: 065
  7. GENOXAL [Suspect]
     Active Substance: CYCLOPHOSPHAMIDE
     Dosage: COMPLETE DOSE
     Route: 065
  8. RITUXIMAB [Suspect]
     Active Substance: RITUXIMAB
     Dosage: SECOND VISIT
     Route: 065
     Dates: start: 20110614, end: 20110619
  9. GENOXAL [Suspect]
     Active Substance: CYCLOPHOSPHAMIDE
     Indication: CHRONIC LYMPHOCYTIC LEUKAEMIA
     Dosage: COMPLETE DOSE
     Route: 065
  10. METILPREDNISOLONA [Suspect]
     Active Substance: METHYLPREDNISOLONE
     Indication: CHRONIC LYMPHOCYTIC LEUKAEMIA
     Dosage: COMPLETE DOSE
     Route: 065
  11. RITUXIMAB [Suspect]
     Active Substance: RITUXIMAB
     Dosage: THIRD VISIT
     Route: 065
     Dates: start: 20110706, end: 20110710

REACTIONS (3)
  - Myositis [Recovered/Resolved]
  - Neutrophil count decreased [Recovered/Resolved]
  - Anaemia [Recovering/Resolving]

NARRATIVE: CASE EVENT DATE: 20110525
